FAERS Safety Report 18851448 (Version 3)
Quarter: 2024Q1

REPORT INFORMATION
  Report Type: Report from Study
  Country: JP (occurrence: JP)
  Receive Date: 20210205
  Receipt Date: 20240329
  Transmission Date: 20240409
  Serious: Yes (Death, Life-Threatening, Other)
  Sender: FDA-Public Use
  Company Number: NVSJ2020JP008732

PATIENT
  Age: 64 Year
  Sex: Male
  Weight: 51 kg

DRUGS (3)
  1. KYMRIAH [Suspect]
     Active Substance: TISAGENLECLEUCEL
     Indication: Diffuse large B-cell lymphoma recurrent
     Dosage: FULL DOSE ADMINISTRATION, TOTAL NUMBER OF CELLS ADMINISTERED:2.3X10^9, 24 ML
     Route: 041
     Dates: start: 20200420, end: 20200420
  2. CYCLOPHOSPHAMIDE [Concomitant]
     Active Substance: CYCLOPHOSPHAMIDE
     Indication: Lymphodepletion
     Dosage: 380 MG/M2
     Route: 065
     Dates: start: 20200415
  3. FLUDARABINE PHOSPHATE [Concomitant]
     Active Substance: FLUDARABINE PHOSPHATE
     Indication: Lymphodepletion
     Dosage: 30 MG/M2
     Route: 065
     Dates: start: 20200415

REACTIONS (7)
  - Diffuse large B-cell lymphoma recurrent [Fatal]
  - Malignant neoplasm progression [Fatal]
  - Pancreatic enlargement [Fatal]
  - Cytokine release syndrome [Recovered/Resolved]
  - Pyrexia [Unknown]
  - Metastases to lymph nodes [Unknown]
  - Lymphocyte count decreased [Unknown]

NARRATIVE: CASE EVENT DATE: 20200423
